FAERS Safety Report 10206477 (Version 2)
Quarter: 2014Q2

REPORT INFORMATION
  Report Type: Spontaneous
  Country: NL (occurrence: NL)
  Receive Date: 20140530
  Receipt Date: 20140602
  Transmission Date: 20141212
  Serious: Yes (Hospitalization)
  Sender: FDA-Public Use
  Company Number: NL-ROCHE-1407923

PATIENT
  Age: 71 Year
  Sex: Male

DRUGS (1)
  1. VISMODEGIB [Suspect]
     Indication: BASAL CELL CARCINOMA
     Route: 065
     Dates: start: 201401

REACTIONS (2)
  - Pneumonia [Recovering/Resolving]
  - Muscle spasms [Unknown]
